FAERS Safety Report 15561660 (Version 2)
Quarter: 2018Q4

REPORT INFORMATION
  Report Type: Report from Study
  Country: JP (occurrence: JP)
  Receive Date: 20181029
  Receipt Date: 20181030
  Transmission Date: 20190205
  Serious: Yes (Other)
  Sender: FDA-Public Use
  Company Number: JP-GLAXOSMITHKLINE-JP2018JPN174444

PATIENT
  Age: 35 Year
  Sex: Female
  Weight: 60 kg

DRUGS (2)
  1. BELIMUMAB SUBCUTANEOUS [Suspect]
     Active Substance: BELIMUMAB
     Indication: SYSTEMIC LUPUS ERYTHEMATOSUS
     Dosage: UNK
     Route: 058
     Dates: start: 20180904
  2. BELIMUMAB SUBCUTANEOUS [Suspect]
     Active Substance: BELIMUMAB
     Dosage: UNK
     Route: 058
     Dates: start: 20181002

REACTIONS (5)
  - Pharyngeal stenosis [Recovered/Resolved]
  - Pharyngitis [Unknown]
  - Pharyngeal oedema [Recovered/Resolved]
  - Nasal oedema [Recovered/Resolved]
  - Viral pharyngitis [Recovered/Resolved]

NARRATIVE: CASE EVENT DATE: 20180918
